FAERS Safety Report 7778627-9 (Version None)
Quarter: 2011Q3

REPORT INFORMATION
  Report Type: 
  Country: None (occurrence: None)
  Receive Date: 20110926
  Receipt Date: 20110915
  Transmission Date: 20111222
  Serious: Yes (Other)
  Sender: FDA-Public Use
  Company Number: US-BAYER-2011-007234

PATIENT
  Age: 22 Year
  Sex: Female
  Weight: 109 kg

DRUGS (13)
  1. SYMBICORT [Concomitant]
     Indication: ASTHMA
     Dosage: 2 PUFFS, BID
     Route: 045
     Dates: start: 20080101
  2. YASMIN [Suspect]
     Indication: CONTRACEPTION
     Dosage: UNK
     Route: 048
     Dates: start: 20070101, end: 20080701
  3. ZOFRAN [Concomitant]
     Indication: NAUSEA
     Dosage: 4 MG, IV PUSH
     Dates: start: 20090101
  4. ZYRTEC [Concomitant]
     Indication: RHINITIS ALLERGIC
     Dosage: 10 MG, ONCE
     Route: 048
  5. MERIDIA [Concomitant]
     Dosage: 10 MG, UNK
  6. SINGULAIR [Concomitant]
     Indication: ASTHMA
     Dosage: 10 MG, DAILY
     Dates: start: 20000101
  7. OMEPRAZOLE [Concomitant]
     Dosage: 20 MG, DAILY
     Route: 048
     Dates: start: 20090101
  8. YASMIN [Suspect]
     Indication: MENSTRUAL CYCLE MANAGEMENT
  9. LISINOPRIL [Concomitant]
  10. ADVAIR DISKUS 100/50 [Concomitant]
     Indication: ASTHMA
     Dosage: 500/50, 1 PUFF, BID
     Route: 045
  11. ALBUTEROL [Concomitant]
     Indication: ASTHMA
     Dosage: 3 ML, EVERY 6 HOURS
     Dates: start: 19860101
  12. CIPROFLOXACIN [Concomitant]
     Dosage: 500 MG, EVERY 12 HOURS
     Route: 048
     Dates: start: 20090408
  13. TRAZODONE HYDROCHLORIDE [Concomitant]
     Indication: INSOMNIA
     Dosage: 100 MG, HS
     Route: 048

REACTIONS (4)
  - GALLBLADDER DISORDER [None]
  - CHOLECYSTITIS CHRONIC [None]
  - ABDOMINAL PAIN [None]
  - EMOTIONAL DISTRESS [None]
